FAERS Safety Report 11399804 (Version 1)
Quarter: 2015Q3

REPORT INFORMATION
  Report Type: Spontaneous
  Country: US (occurrence: None)
  Receive Date: 20150819
  Receipt Date: 20150819
  Transmission Date: 20151125
  Serious: Yes (Death, Hospitalization)
  Sender: FDA-Public Use
  Company Number: None

PATIENT
  Age: 54 Year
  Sex: Male
  Weight: 156.2 kg

DRUGS (2)
  1. CYTARABINE. [Suspect]
     Active Substance: CYTARABINE
     Dates: end: 20150112
  2. IDARUBICIN [Suspect]
     Active Substance: IDARUBICIN
     Dates: end: 20150111

REACTIONS (5)
  - Pancytopenia [None]
  - Acute respiratory failure [None]
  - Renal failure [None]
  - General physical health deterioration [None]
  - Anaemia [None]

NARRATIVE: CASE EVENT DATE: 20150130
